FAERS Safety Report 23334365 (Version 1)
Quarter: 2023Q4

REPORT INFORMATION
  Report Type: Other
  Country: US (occurrence: US)
  Receive Date: 20231223
  Receipt Date: 20231223
  Transmission Date: 20240109
  Serious: Yes (Other)
  Sender: FDA-Public Use
  Company Number: US-HLS-202302247

PATIENT
  Sex: Male

DRUGS (1)
  1. CLOZAPINE [Suspect]
     Active Substance: CLOZAPINE
     Indication: Product used for unknown indication
     Dosage: ON 7TH DAY 100 MG/DAY, ON 14 DAY DOSE 150 MG/DAY
     Route: 065

REACTIONS (5)
  - Drug reaction with eosinophilia and systemic symptoms [Unknown]
  - C-reactive protein increased [Unknown]
  - Eosinophilia [Unknown]
  - Myocarditis [Recovering/Resolving]
  - Rash [Unknown]
